FAERS Safety Report 7764357-6 (Version None)
Quarter: 2011Q3

REPORT INFORMATION
  Report Type: 
  Country: None (occurrence: None)
  Receive Date: 20110920
  Receipt Date: 20110920
  Transmission Date: 20111222
  Serious: Yes (Hospitalization)
  Sender: FDA-Public Use
  Company Number: None

PATIENT
  Age: 81 Year
  Sex: Male

DRUGS (1)
  1. MORPHINE [Suspect]
     Dosage: 8 MG ONCE IV
     Route: 042
     Dates: start: 20110423

REACTIONS (1)
  - SEDATION [None]
